FAERS Safety Report 7584025-3 (Version None)
Quarter: 2011Q2

REPORT INFORMATION
  Report Type: 
  Country: None (occurrence: None)
  Receive Date: 20110623
  Receipt Date: 20110608
  Transmission Date: 20111010
  Serious: Yes (Hospitalization, Other)
  Sender: FDA-Public Use
  Company Number: 2011MA006938

PATIENT
  Age: 68 Year
  Sex: Male

DRUGS (2)
  1. PAREGORIC LIQUID USP (ALPHARMA) [Suspect]
     Indication: PAIN
     Dosage: 8 MG;QD;INTH
     Route: 037
  2. BUPIVACAINE HCL [Concomitant]

REACTIONS (3)
  - PAIN [None]
  - DELIRIUM [None]
  - SEDATION [None]
